FAERS Safety Report 10592060 (Version 2)
Quarter: 2015Q1

REPORT INFORMATION
  Report Type: Spontaneous
  Country: US (occurrence: US)
  Receive Date: 20141119
  Receipt Date: 20150105
  Transmission Date: 20150720
  Serious: No
  Sender: FDA-Public Use
  Company Number: US-009507513-1411USA001702

PATIENT
  Sex: Female

DRUGS (1)
  1. DULERA [Suspect]
     Active Substance: FORMOTEROL FUMARATE DIHYDRATE\MOMETASONE FUROATE
     Dosage: TWO PUFFS ONCE A DAY
     Route: 055

REACTIONS (4)
  - Drug dose omission [Unknown]
  - Inappropriate schedule of drug administration [Unknown]
  - No adverse event [Unknown]
  - Product quality issue [Unknown]
